FAERS Safety Report 8314862-9 (Version None)
Quarter: 2012Q2

REPORT INFORMATION
  Report Type: 
  Country: None (occurrence: None)
  Receive Date: 20120426
  Receipt Date: 20120302
  Transmission Date: 20120825
  Serious: Yes (Other)
  Sender: FDA-Public Use
  Company Number: US-MYLANLABS-2012S1002232

PATIENT
  Age: 65 Year
  Sex: Male

DRUGS (7)
  1. CARDIZEM [Concomitant]
  2. CLONIDINE [Suspect]
     Indication: HYPERTENSION
     Dosage: CHANGED QW
     Route: 062
     Dates: start: 20120122, end: 20120129
  3. LANTUS [Concomitant]
  4. DIGITALIS TAB [Concomitant]
  5. ALTACE [Concomitant]
  6. CLONIDINE [Suspect]
     Dosage: QWEEKLY
     Route: 062
     Dates: start: 20120201, end: 20120227
  7. PRADAXA [Concomitant]

REACTIONS (4)
  - BLOOD PRESSURE INCREASED [None]
  - APPLICATION SITE RASH [None]
  - DRUG INEFFECTIVE [None]
  - HEADACHE [None]
